FAERS Safety Report 14662686 (Version 2)
Quarter: 2018Q2

REPORT INFORMATION
  Report Type: Spontaneous
  Country: JP (occurrence: JP)
  Receive Date: 20180321
  Receipt Date: 20180402
  Transmission Date: 20180711
  Serious: Yes (Other)
  Sender: FDA-Public Use
  Company Number: JP-BRISTOL-MYERS SQUIBB COMPANY-BMS-2017-099034

PATIENT
  Age: 82 Year
  Sex: Male

DRUGS (2)
  1. OPDIVO [Suspect]
     Active Substance: NIVOLUMAB
     Indication: NON-SMALL CELL LUNG CANCER RECURRENT
     Dosage: 110 MG, UNK
     Route: 041
     Dates: start: 20160914, end: 20170410
  2. OPDIVO [Suspect]
     Active Substance: NIVOLUMAB
     Indication: PRODUCT USED FOR UNKNOWN INDICATION
     Dosage: 100 MG, UNK
     Route: 041
     Dates: start: 20170424, end: 20170525

REACTIONS (4)
  - Lung infection [Recovered/Resolved]
  - Prescribed underdose [Unknown]
  - Malignant neoplasm progression [Unknown]
  - Renal disorder [Recovered/Resolved]

NARRATIVE: CASE EVENT DATE: 20160914
